FAERS Safety Report 20574054 (Version 10)
Quarter: 2023Q1

REPORT INFORMATION
  Report Type: Spontaneous
  Country: US (occurrence: US)
  Receive Date: 20220309
  Receipt Date: 20230328
  Transmission Date: 20230418
  Serious: No
  Sender: FDA-Public Use
  Company Number: US-PFIZER INC-202200318064

PATIENT
  Age: 69 Year
  Sex: Female
  Weight: 56.7 kg

DRUGS (3)
  1. PREMARIN [Suspect]
     Active Substance: ESTROGENS, CONJUGATED
     Indication: Hot flush
     Dosage: 0.5 G, 2X/WEEK (INSERT ONE HALF GRAM TWICE WEEKLY, MAKES IT ONE GRAM WEEKLY)
     Route: 067
  2. PREMARIN [Suspect]
     Active Substance: ESTROGENS, CONJUGATED
     Indication: Vulvovaginal dryness
     Dosage: 0.5 G (2-3 TIMES WEEKLY)
     Route: 067
  3. PREMARIN [Suspect]
     Active Substance: ESTROGENS, CONJUGATED
     Dosage: 1 G, 2X/WEEK (APPLY 1 GRAM VAGINALLY AT BEDTIMES, 2 TIMES WEEKLY)
     Route: 067
     Dates: start: 20230228

REACTIONS (5)
  - Drug ineffective [Unknown]
  - Memory impairment [Unknown]
  - Movement disorder [Unknown]
  - Off label use [Unknown]
  - Incorrect dose administered [Unknown]
